FAERS Safety Report 9452874 (Version 3)
Quarter: 2013Q3

REPORT INFORMATION
  Report Type: Spontaneous
  Country: US (occurrence: US)
  Receive Date: 20130812
  Receipt Date: 20130821
  Transmission Date: 20140515
  Serious: Yes (Hospitalization, Other)
  Sender: FDA-Public Use
  Company Number: US-PFIZER INC-2013229795

PATIENT
  Age: 68 Year
  Sex: Female
  Weight: 63.04 kg

DRUGS (7)
  1. REVATIO [Suspect]
     Indication: PULMONARY HYPERTENSION
     Dosage: 20 MG, 1X/DAY
     Route: 048
     Dates: start: 2011
  2. REVATIO [Suspect]
     Indication: HEART RATE DECREASED
     Dosage: 20 MG, 2X/DAY
     Route: 048
     Dates: start: 20120518
  3. XARELTO [Concomitant]
     Dosage: 20 MG, DAILY
  4. COUMADIN [Concomitant]
     Dosage: UNK
  5. NEXIUM [Concomitant]
     Indication: ABDOMINAL DISCOMFORT
     Dosage: 40 MG, DAILY
  6. NEURONTIN [Concomitant]
     Dosage: 30 MG, 2X/DAY
  7. TEKTURNA [Concomitant]
     Dosage: 30 MG, DAILY
     Route: 048

REACTIONS (11)
  - Cardiac failure congestive [Unknown]
  - Pericardial effusion [Unknown]
  - Dyspnoea [Unknown]
  - Inappropriate schedule of drug administration [Unknown]
  - Musculoskeletal pain [Unknown]
  - Back pain [Unknown]
  - Arthralgia [Unknown]
  - Muscle spasms [Unknown]
  - Musculoskeletal stiffness [Unknown]
  - Movement disorder [Unknown]
  - Off label use [Unknown]
